FAERS Safety Report 20695788 (Version 1)
Quarter: 2022Q2

REPORT INFORMATION
  Report Type: Spontaneous
  Country: GB (occurrence: GB)
  Receive Date: 20220411
  Receipt Date: 20220411
  Transmission Date: 20220721
  Serious: Yes (Hospitalization, Other)
  Sender: FDA-Public Use
  Company Number: GB-MHRA-MED-202204051122123830-9O6EF

PATIENT
  Age: 30 Year
  Sex: Female

DRUGS (9)
  1. LEVETIRACETAM [Suspect]
     Active Substance: LEVETIRACETAM
     Indication: Epilepsy
     Dosage: 250 MILLIGRAM, BID
     Dates: start: 20220317, end: 20220404
  2. CALCIUM CARBONATE\CHOLECALCIFEROL [Concomitant]
     Active Substance: CALCIUM CARBONATE\CHOLECALCIFEROL
     Indication: Gastric bypass
     Dosage: UNK
  3. CODEINE [Concomitant]
     Active Substance: CODEINE
     Dosage: UNK
  4. CYCLIZINE [Concomitant]
     Active Substance: CYCLIZINE
     Dosage: UNK
  5. FOLIC ACID [Concomitant]
     Active Substance: FOLIC ACID
     Indication: Gastric bypass
     Dosage: UNK
  6. HYDROCORTISONE [Concomitant]
     Active Substance: HYDROCORTISONE
     Dosage: UNK
     Dates: start: 20220330
  7. HYDROCORTISONE [Concomitant]
     Active Substance: HYDROCORTISONE
     Dosage: UNK
     Dates: start: 20220303
  8. SODIUM PHOSPHATE, MONOBASIC, ANHYDROUS [Concomitant]
     Active Substance: SODIUM PHOSPHATE, MONOBASIC, ANHYDROUS
     Dosage: UNK
  9. VENTOLIN [Concomitant]
     Active Substance: ALBUTEROL SULFATE
     Dosage: UNK

REACTIONS (4)
  - Skin exfoliation [Not Recovered/Not Resolved]
  - Erythema [Not Recovered/Not Resolved]
  - Nausea [Not Recovered/Not Resolved]
  - Diarrhoea [Not Recovered/Not Resolved]

NARRATIVE: CASE EVENT DATE: 20220330
